FAERS Safety Report 7575036-2 (Version None)
Quarter: 2011Q2

REPORT INFORMATION
  Report Type: 
  Country: None (occurrence: None)
  Receive Date: 20110627
  Receipt Date: 20110607
  Transmission Date: 20111010
  Serious: Yes (Other)
  Sender: FDA-Public Use
  Company Number: BR-BAYER-2011-006916

PATIENT
  Age: 38 Year
  Sex: Female
  Weight: 55 kg

DRUGS (3)
  1. MOTILIUM [Concomitant]
     Indication: GASTROOESOPHAGEAL REFLUX DISEASE
     Dosage: UNK
     Route: 048
     Dates: start: 20110101
  2. MIRENA [Suspect]
     Indication: CONTRACEPTION
     Dosage: 20 MCG/24HR, CONT
     Route: 015
     Dates: start: 20101213
  3. RABEPRAZOLE SODIUM [Concomitant]
     Indication: GASTROOESOPHAGEAL REFLUX DISEASE
     Dosage: UNK
     Route: 048
     Dates: start: 20110101

REACTIONS (13)
  - BACK PAIN [None]
  - CHOKING [None]
  - PAIN [None]
  - DEVICE DISLOCATION [None]
  - OVARIAN CYST [None]
  - PHARYNGEAL DISORDER [None]
  - COUGH [None]
  - MENOMETRORRHAGIA [None]
  - OVARIAN ENLARGEMENT [None]
  - ABDOMINAL DISCOMFORT [None]
  - DYSPNOEA [None]
  - BLOOD CREATINE PHOSPHOKINASE INCREASED [None]
  - PROCEDURAL PAIN [None]
